FAERS Safety Report 4605978-9 (Version None)
Quarter: 2005Q1

REPORT INFORMATION
  Report Type: 
  Country: None (occurrence: None)
  Receive Date: 20050311
  Receipt Date: 20050305
  Transmission Date: 20050727
  Serious: Yes (Other)
  Sender: FDA-Public Use
  Company Number: GB-GLAXOSMITHKLINE-B0373790A

PATIENT
  Age: 60 Year
  Sex: Female

DRUGS (3)
  1. SERETIDE [Suspect]
     Indication: ASTHMA
     Route: 065
     Dates: start: 20041011, end: 20050207
  2. COZAAR [Concomitant]
     Indication: HYPERTENSION
     Route: 048
     Dates: start: 20040922
  3. TRAMADOL HCL [Concomitant]
     Indication: SCIATICA
     Route: 048
     Dates: start: 20031106

REACTIONS (2)
  - ARTHROPATHY [None]
  - MOBILITY DECREASED [None]
